FAERS Safety Report 4592681-7 (Version None)
Quarter: 2005Q1

REPORT INFORMATION
  Report Type: 
  Country: None (occurrence: None)
  Receive Date: 20050222
  Receipt Date: 20050204
  Transmission Date: 20050727
  Serious: No
  Sender: FDA-Public Use
  Company Number: 2005AP01030

PATIENT
  Age: 69 Year
  Sex: Male

DRUGS (6)
  1. MARCAINE [Suspect]
  2. LIDOCAINE [Suspect]
  3. DIPRIVAN [Suspect]
  4. GENTAMICIN SULFATE [Suspect]
  5. KEFZOL [Suspect]
  6. MIDAZOLAM [Suspect]

REACTIONS (1)
  - HYPERSENSITIVITY [None]
